FAERS Safety Report 12679568 (Version 2)
Quarter: 2016Q4

REPORT INFORMATION
  Report Type: Spontaneous
  Country: US (occurrence: US)
  Receive Date: 20160824
  Receipt Date: 20161104
  Transmission Date: 20170207
  Serious: Yes (Other)
  Sender: FDA-Public Use
  Company Number: US-BRISTOL-MYERS SQUIBB COMPANY-BMS-2016-068097

PATIENT
  Age: 61 Year
  Sex: Female
  Weight: 58.96 kg

DRUGS (1)
  1. OPDIVO [Suspect]
     Active Substance: NIVOLUMAB
     Indication: NON-SMALL CELL LUNG CANCER
     Dosage: 179 MG, Q2WK
     Route: 042
     Dates: start: 20160803

REACTIONS (2)
  - Pyrexia [Unknown]
  - Chest pain [Unknown]

NARRATIVE: CASE EVENT DATE: 20160808
